FAERS Safety Report 18192043 (Version 2)
Quarter: 2020Q4

REPORT INFORMATION
  Report Type: Spontaneous
  Country: US (occurrence: US)
  Receive Date: 20200825
  Receipt Date: 20201003
  Transmission Date: 20210113
  Serious: Yes (Other)
  Sender: FDA-Public Use
  Company Number: US-AUROBINDO-AUR-APL-2020-039947

PATIENT
  Age: 80 Year
  Sex: Female
  Weight: 77.11 kg

DRUGS (2)
  1. RANITIDINE 300 MG CAPSULES [Suspect]
     Active Substance: RANITIDINE
     Dosage: UNK (DOUBLED DOSE)
     Route: 065
     Dates: end: 20191203
  2. RANITIDINE 300 MG CAPSULES [Suspect]
     Active Substance: RANITIDINE
     Indication: GASTROOESOPHAGEAL REFLUX DISEASE
     Dosage: 1 DOSAGE FORM, ONCE A DAY
     Route: 065
     Dates: start: 20190905

REACTIONS (5)
  - Drug ineffective [Unknown]
  - Angina pectoris [Recovered/Resolved]
  - Product impurity [Unknown]
  - Vomiting [Recovered/Resolved]
  - Illness [Recovered/Resolved]

NARRATIVE: CASE EVENT DATE: 20190905
